FAERS Safety Report 8087339-6 (Version None)
Quarter: 2012Q1

REPORT INFORMATION
  Report Type: 
  Country: None (occurrence: None)
  Receive Date: 20120128
  Receipt Date: 20110427
  Transmission Date: 20120608
  Serious: No
  Sender: FDA-Public Use
  Company Number: US-ABBOTT-11P-163-0722258-00

PATIENT
  Sex: Female
  Weight: 93.07 kg

DRUGS (9)
  1. VALTREX [Concomitant]
     Indication: HERPES VIRUS INFECTION
  2. HUMIRA [Suspect]
     Indication: PSORIASIS
  3. SIMVASTATIN [Concomitant]
     Indication: BLOOD CHOLESTEROL INCREASED
  4. HUMIRA [Suspect]
     Indication: PSORIATIC ARTHROPATHY
     Dates: start: 20100707
  5. METHOTREXATE [Concomitant]
     Indication: PSORIATIC ARTHROPATHY
  6. CARMOL OIL [Concomitant]
     Indication: PSORIASIS
  7. ESTRADIOL [Concomitant]
     Indication: HORMONE REPLACEMENT THERAPY
  8. FLUOCINONIDE [Concomitant]
     Indication: PSORIASIS
     Dosage: 0.05
  9. METHOTREXATE [Concomitant]
     Indication: PSORIASIS

REACTIONS (16)
  - MUSCLE TIGHTNESS [None]
  - PAIN IN JAW [None]
  - TOOTH FRACTURE [None]
  - SINUSITIS [None]
  - LIGAMENT SPRAIN [None]
  - FACIAL PAIN [None]
  - CHILLS [None]
  - UPPER RESPIRATORY TRACT INFECTION [None]
  - COUGH [None]
  - SINUS PERFORATION [None]
  - MUSCULOSKELETAL STIFFNESS [None]
  - ROAD TRAFFIC ACCIDENT [None]
  - TOOTH INFECTION [None]
  - TOOTH ABSCESS [None]
  - TOOTH EROSION [None]
  - PYREXIA [None]
